FAERS Safety Report 20971190 (Version 2)
Quarter: 2022Q3

REPORT INFORMATION
  Report Type: Spontaneous
  Country: US (occurrence: US)
  Receive Date: 20220616
  Receipt Date: 20220714
  Transmission Date: 20221027
  Serious: No
  Sender: FDA-Public Use
  Company Number: US-SA-SAC20220609001379

PATIENT
  Age: 2 Year
  Sex: Female

DRUGS (2)
  1. DUPIXENT [Suspect]
     Active Substance: DUPILUMAB
     Dosage: 200 MG, UNK
     Route: 058
     Dates: start: 20220607
  2. DUPIXENT [Suspect]
     Active Substance: DUPILUMAB
     Dosage: 200 MG, Q4W

REACTIONS (1)
  - Device use issue [Unknown]

NARRATIVE: CASE EVENT DATE: 20220607
